FAERS Safety Report 23388985 (Version 1)
Quarter: 2024Q1

REPORT INFORMATION
  Report Type: Spontaneous
  Country: US (occurrence: US)
  Receive Date: 20240110
  Receipt Date: 20240110
  Transmission Date: 20240409
  Serious: Yes (Other)
  Sender: FDA-Public Use
  Company Number: US-ELI_LILLY_AND_COMPANY-US202401000547

PATIENT
  Age: 73 Year
  Sex: Male

DRUGS (4)
  1. MOUNJARO [Suspect]
     Active Substance: TIRZEPATIDE
     Indication: Diabetes mellitus
     Dosage: 5 MG, UNKNOWN
     Route: 058
     Dates: end: 20231219
  2. MOUNJARO [Suspect]
     Active Substance: TIRZEPATIDE
     Dosage: 5 MG, UNKNOWN
     Route: 058
     Dates: start: 20231227
  3. TRADJENTA [Concomitant]
     Active Substance: LINAGLIPTIN
     Indication: Diabetes mellitus
  4. PLAVIX [Concomitant]
     Active Substance: CLOPIDOGREL BISULFATE
     Indication: Anticoagulant therapy

REACTIONS (4)
  - Giant cell arteritis [Not Recovered/Not Resolved]
  - Blood glucose fluctuation [Not Recovered/Not Resolved]
  - Gastrooesophageal reflux disease [Recovering/Resolving]
  - Abdominal discomfort [Recovering/Resolving]

NARRATIVE: CASE EVENT DATE: 20231101
